FAERS Safety Report 8153409-7 (Version None)
Quarter: 2012Q1

REPORT INFORMATION
  Report Type: 
  Country: None (occurrence: None)
  Receive Date: 20120221
  Receipt Date: 20120215
  Transmission Date: 20120608
  Serious: Yes (Hospitalization)
  Sender: FDA-Public Use
  Company Number: US-GILEAD-2012-0050814

PATIENT
  Sex: Female

DRUGS (2)
  1. VENTAVIS [Concomitant]
  2. LETAIRIS [Suspect]
     Indication: PRODUCT USED FOR UNKNOWN INDICATION
     Dosage: 5 MG, UNK
     Route: 048
     Dates: start: 20110919, end: 20120209

REACTIONS (3)
  - DIVERTICULITIS [None]
  - ABDOMINAL DISCOMFORT [None]
  - ABDOMINAL PAIN [None]
